FAERS Safety Report 15076500 (Version 1)
Quarter: 2018Q2

REPORT INFORMATION
  Report Type: Report from Study
  Country: US (occurrence: US)
  Receive Date: 20180627
  Receipt Date: 20180627
  Transmission Date: 20180711
  Serious: Yes (Other)
  Sender: FDA-Public Use
  Company Number: US-JNJFOC-20180400161

PATIENT
  Age: 65 Year
  Sex: Male
  Weight: 119 kg

DRUGS (64)
  1. XARELTO [Suspect]
     Active Substance: RIVAROXABAN
     Indication: ATRIAL FIBRILLATION
     Route: 048
     Dates: start: 20180510
  2. XARELTO [Suspect]
     Active Substance: RIVAROXABAN
     Indication: ATRIAL FIBRILLATION
     Route: 048
     Dates: start: 20180517
  3. VALACYCLOVIR HCL [Concomitant]
     Active Substance: VALACYCLOVIR HYDROCHLORIDE
     Route: 048
     Dates: start: 20140721, end: 20180503
  4. AMLODIPINE BESYLATE. [Concomitant]
     Active Substance: AMLODIPINE BESYLATE
     Dosage: TAKING HALF A PILL NOW
     Route: 048
     Dates: start: 20180524
  5. OXYBUTYNIN CHLORIDE. [Concomitant]
     Active Substance: OXYBUTYNIN CHLORIDE
     Route: 048
     Dates: start: 20180503
  6. FUROSEMIDE. [Concomitant]
     Active Substance: FUROSEMIDE
     Dosage: 20 MG, AS DIRECTED
     Route: 048
     Dates: start: 20180517
  7. FUROSEMIDE. [Concomitant]
     Active Substance: FUROSEMIDE
     Dosage: 20 MG, AS DIRECTED
     Route: 048
     Dates: start: 20180607
  8. CHLORAMBUCIL [Concomitant]
     Active Substance: CHLORAMBUCIL
     Indication: LEUKAEMIA
     Dosage: TAKE 8 TABLETS DAY 1 AND DAY 15
     Route: 048
     Dates: start: 20180503
  9. CHLORAMBUCIL [Concomitant]
     Active Substance: CHLORAMBUCIL
     Indication: LEUKAEMIA
     Dosage: TAKE 8 TABLETS DAY 1 AND DAY 15
     Route: 048
     Dates: start: 20180607
  10. PERCOCET [Concomitant]
     Active Substance: ACETAMINOPHEN\OXYCODONE HYDROCHLORIDE
     Indication: PAIN
     Dosage: 1 TABLET Q4-6H PRN
     Route: 048
     Dates: start: 20180517
  11. LISINOPRIL. [Concomitant]
     Active Substance: LISINOPRIL
     Dosage: 20 MG, AS DIRECTED
     Route: 048
     Dates: start: 20180503
  12. XARELTO [Suspect]
     Active Substance: RIVAROXABAN
     Indication: ATRIAL FIBRILLATION
     Route: 048
     Dates: start: 20180524
  13. XARELTO [Suspect]
     Active Substance: RIVAROXABAN
     Indication: ATRIAL FIBRILLATION
     Route: 048
     Dates: start: 2018
  14. AMLODIPINE BESYLATE. [Concomitant]
     Active Substance: AMLODIPINE BESYLATE
     Dosage: TAKING HALF A PILL NOW
     Route: 048
     Dates: start: 20180503
  15. AMLODIPINE BESYLATE. [Concomitant]
     Active Substance: AMLODIPINE BESYLATE
     Dosage: TAKING HALF A PILL NOW
     Route: 048
     Dates: start: 20180531
  16. OXYBUTYNIN CHLORIDE. [Concomitant]
     Active Substance: OXYBUTYNIN CHLORIDE
     Route: 048
     Dates: start: 20180531
  17. FUROSEMIDE. [Concomitant]
     Active Substance: FUROSEMIDE
     Dosage: 20 MG, AS DIRECTED
     Route: 048
     Dates: start: 20180524
  18. FUROSEMIDE. [Concomitant]
     Active Substance: FUROSEMIDE
     Dosage: 20 MG, AS DIRECTED
     Route: 048
     Dates: start: 20180531
  19. LIPITOR [Concomitant]
     Active Substance: ATORVASTATIN CALCIUM
     Route: 048
     Dates: start: 20180510
  20. XARELTO [Suspect]
     Active Substance: RIVAROXABAN
     Indication: ATRIAL FIBRILLATION
     Route: 048
     Dates: start: 2008
  21. VALACYCLOVIR HCL [Concomitant]
     Active Substance: VALACYCLOVIR HYDROCHLORIDE
     Route: 048
     Dates: start: 20180510
  22. VALACYCLOVIR HCL [Concomitant]
     Active Substance: VALACYCLOVIR HYDROCHLORIDE
     Route: 048
     Dates: start: 20180524
  23. LIPITOR [Concomitant]
     Active Substance: ATORVASTATIN CALCIUM
     Route: 048
     Dates: start: 20180524
  24. PERCOCET [Concomitant]
     Active Substance: ACETAMINOPHEN\OXYCODONE HYDROCHLORIDE
     Indication: PAIN
     Dosage: 1 TABLET Q4-6H PRN
     Route: 048
     Dates: start: 20180510
  25. LISINOPRIL. [Concomitant]
     Active Substance: LISINOPRIL
     Route: 048
     Dates: start: 20180524
  26. IMBRUVICA [Suspect]
     Active Substance: IBRUTINIB
     Indication: CHRONIC LYMPHOCYTIC LEUKAEMIA
     Route: 048
     Dates: start: 20180208, end: 20180504
  27. VALACYCLOVIR HCL [Concomitant]
     Active Substance: VALACYCLOVIR HYDROCHLORIDE
     Route: 048
     Dates: start: 20180607
  28. AMLODIPINE BESYLATE. [Concomitant]
     Active Substance: AMLODIPINE BESYLATE
     Route: 048
     Dates: start: 20180607
  29. OXYBUTYNIN CHLORIDE. [Concomitant]
     Active Substance: OXYBUTYNIN CHLORIDE
     Route: 048
     Dates: start: 20180517
  30. FUROSEMIDE. [Concomitant]
     Active Substance: FUROSEMIDE
     Dosage: 20 MG, AS DIRECTED
     Route: 048
     Dates: start: 20180503
  31. LISINOPRIL. [Concomitant]
     Active Substance: LISINOPRIL
     Route: 048
     Dates: start: 20180510
  32. FENTANYL. [Concomitant]
     Active Substance: FENTANYL
     Dosage: 1 PATCH TOPICAL Q72H
     Route: 062
     Dates: start: 20180503
  33. FENTANYL. [Concomitant]
     Active Substance: FENTANYL
     Dosage: 1 PATCH TOPICAL Q72H
     Route: 062
     Dates: start: 20180517
  34. IMBRUVICA [Suspect]
     Active Substance: IBRUTINIB
     Indication: CHRONIC LYMPHOCYTIC LEUKAEMIA
     Dosage: 420 MG, QD
     Route: 048
  35. XARELTO [Suspect]
     Active Substance: RIVAROXABAN
     Indication: ATRIAL FIBRILLATION
     Route: 048
     Dates: start: 20180503
  36. XARELTO [Suspect]
     Active Substance: RIVAROXABAN
     Indication: ATRIAL FIBRILLATION
     Route: 048
     Dates: start: 20180531
  37. AMLODIPINE BESYLATE. [Concomitant]
     Active Substance: AMLODIPINE BESYLATE
     Dosage: TAKING HALF A PILL NOW
     Route: 048
     Dates: start: 20180510
  38. AMLODIPINE BESYLATE. [Concomitant]
     Active Substance: AMLODIPINE BESYLATE
     Dosage: TAKING HALF A PILL NOW
     Route: 048
     Dates: start: 20180517
  39. CHLORAMBUCIL [Concomitant]
     Active Substance: CHLORAMBUCIL
     Indication: LEUKAEMIA
     Dosage: TAKE 8 TABLETS DAY 1 AND DAY 15
     Route: 048
     Dates: start: 20180510
  40. LIPITOR [Concomitant]
     Active Substance: ATORVASTATIN CALCIUM
     Route: 048
     Dates: start: 20180503
  41. LIPITOR [Concomitant]
     Active Substance: ATORVASTATIN CALCIUM
     Route: 048
     Dates: start: 20180517
  42. LIPITOR [Concomitant]
     Active Substance: ATORVASTATIN CALCIUM
     Route: 048
     Dates: start: 20180531
  43. PERCOCET [Concomitant]
     Active Substance: ACETAMINOPHEN\OXYCODONE HYDROCHLORIDE
     Indication: PAIN
     Dosage: 1 TABLET Q4-6H PRN
     Route: 048
     Dates: start: 20180503
  44. PERCOCET [Concomitant]
     Active Substance: ACETAMINOPHEN\OXYCODONE HYDROCHLORIDE
     Indication: PAIN
     Dosage: 1 TABLET Q4-6H PRN
     Route: 048
     Dates: start: 20180524
  45. LISINOPRIL. [Concomitant]
     Active Substance: LISINOPRIL
     Route: 048
     Dates: start: 20180517
  46. OXYBUTYNIN CHLORIDE. [Concomitant]
     Active Substance: OXYBUTYNIN CHLORIDE
     Route: 048
     Dates: start: 20180524
  47. FUROSEMIDE. [Concomitant]
     Active Substance: FUROSEMIDE
     Dosage: 20 MG, AS DIRECTED
     Route: 048
     Dates: start: 20180510
  48. LIPITOR [Concomitant]
     Active Substance: ATORVASTATIN CALCIUM
     Route: 048
     Dates: start: 20180607
  49. PERCOCET [Concomitant]
     Active Substance: ACETAMINOPHEN\OXYCODONE HYDROCHLORIDE
     Indication: PAIN
     Dosage: 1 TABLET Q4-6H PRN
     Route: 048
     Dates: start: 20180531
  50. FENTANYL. [Concomitant]
     Active Substance: FENTANYL
     Dosage: 1 PATCH TOPICAL Q72H
     Route: 062
     Dates: start: 20180510
  51. XARELTO [Suspect]
     Active Substance: RIVAROXABAN
     Indication: ATRIAL FIBRILLATION
     Route: 048
     Dates: start: 20180607
  52. VALACYCLOVIR HCL [Concomitant]
     Active Substance: VALACYCLOVIR HYDROCHLORIDE
     Route: 048
     Dates: start: 20180517
  53. OXYBUTYNIN CHLORIDE. [Concomitant]
     Active Substance: OXYBUTYNIN CHLORIDE
     Route: 048
     Dates: start: 20180510
  54. CHLORAMBUCIL [Concomitant]
     Active Substance: CHLORAMBUCIL
     Indication: LEUKAEMIA
     Dosage: TAKE 8 TABLETS DAY 1 AND DAY 15
     Route: 048
     Dates: start: 20180524
  55. PERCOCET [Concomitant]
     Active Substance: ACETAMINOPHEN\OXYCODONE HYDROCHLORIDE
     Indication: PAIN
     Dosage: 1 TABLET Q4-6H PRN
     Route: 048
     Dates: start: 20180607
  56. LISINOPRIL. [Concomitant]
     Active Substance: LISINOPRIL
     Route: 048
     Dates: start: 20180531
  57. LISINOPRIL. [Concomitant]
     Active Substance: LISINOPRIL
     Route: 048
     Dates: start: 20180607
  58. FENTANYL. [Concomitant]
     Active Substance: FENTANYL
     Dosage: 1 PATCH TOPICAL Q72H
     Route: 062
     Dates: start: 20180524
  59. FENTANYL. [Concomitant]
     Active Substance: FENTANYL
     Dosage: 1 PATCH TOPICAL Q72H
     Route: 062
     Dates: start: 20180607
  60. IMBRUVICA [Suspect]
     Active Substance: IBRUTINIB
     Indication: CHRONIC LYMPHOCYTIC LEUKAEMIA
     Route: 048
     Dates: start: 20180518
  61. OXYBUTYNIN CHLORIDE. [Concomitant]
     Active Substance: OXYBUTYNIN CHLORIDE
     Route: 048
     Dates: start: 20180607
  62. CHLORAMBUCIL [Concomitant]
     Active Substance: CHLORAMBUCIL
     Indication: LEUKAEMIA
     Dosage: TAKE 8 TABLETS DAY 1 AND DAY 15
     Route: 048
     Dates: start: 20180517
  63. CHLORAMBUCIL [Concomitant]
     Active Substance: CHLORAMBUCIL
     Indication: LEUKAEMIA
     Dosage: TAKE 8 TABLETS DAY 1 AND DAY 15
     Route: 048
     Dates: start: 20180531
  64. FENTANYL. [Concomitant]
     Active Substance: FENTANYL
     Dosage: 1 PATCH TOPICAL Q72H
     Route: 062
     Dates: start: 20180531

REACTIONS (12)
  - Cystitis haemorrhagic [Unknown]
  - Blood glucose increased [Unknown]
  - Peripheral swelling [Not Recovered/Not Resolved]
  - Hernia [Recovered/Resolved]
  - Blood potassium decreased [Unknown]
  - Oral herpes [Recovered/Resolved]
  - Dry skin [Recovering/Resolving]
  - Joint swelling [Not Recovered/Not Resolved]
  - Skin fissures [Recovering/Resolving]
  - Epistaxis [Recovered/Resolved]
  - Abdominal distension [Not Recovered/Not Resolved]
  - Dyspnoea exertional [Not Recovered/Not Resolved]

NARRATIVE: CASE EVENT DATE: 20180410
